FAERS Safety Report 9097784 (Version 1)
Quarter: 2013Q1

REPORT INFORMATION
  Report Type: Spontaneous
  Country: JP (occurrence: JP)
  Receive Date: 20130212
  Receipt Date: 20130212
  Transmission Date: 20140127
  Serious: Yes (Other)
  Sender: FDA-Public Use
  Company Number: JP-ROCHE-1190290

PATIENT
  Age: 9 Year
  Sex: Female

DRUGS (4)
  1. TAMIFLU [Suspect]
     Indication: INFLUENZA
     Route: 048
     Dates: start: 20091208
  2. TAMIFLU [Suspect]
     Indication: INFLUENZA
     Route: 048
     Dates: start: 20130118
  3. CLARITH [Concomitant]
     Dosage: A DOSE
     Route: 048
  4. CALONAL [Concomitant]
     Dosage: A DOSE
     Route: 048

REACTIONS (2)
  - Abnormal behaviour [Unknown]
  - Abnormal behaviour [Recovered/Resolved]
